FAERS Safety Report 4660580-8 (Version None)
Quarter: 2005Q2

REPORT INFORMATION
  Report Type: 
  Country: None (occurrence: None)
  Receive Date: 20050425
  Receipt Date: 20041012
  Transmission Date: 20051028
  Serious: No
  Sender: FDA-Public Use
  Company Number: US095075

PATIENT
  Age: 50 Year
  Sex: Male

DRUGS (4)
  1. SENSIPAR [Suspect]
     Indication: HYPERPARATHYROIDISM SECONDARY
     Dosage: 30 MG, 1 IN 1 DAYS,PO
     Route: 048
     Dates: start: 20040902, end: 20040909
  2. EPOGEN [Concomitant]
  3. AMLODIPINE BESYLATE [Concomitant]
  4. SEVELAMER HCL [Concomitant]

REACTIONS (1)
  - STOMATITIS HAEMORRHAGIC [None]
